FAERS Safety Report 15183659 (Version 1)
Quarter: 2018Q3

REPORT INFORMATION
  Report Type: Spontaneous
  Country: HR (occurrence: HR)
  Receive Date: 20180723
  Receipt Date: 20180723
  Transmission Date: 20181010
  Serious: Yes (Other)
  Sender: FDA-Public Use
  Company Number: HR-PFIZER INC-2018294446

PATIENT
  Age: 59 Year
  Sex: Male

DRUGS (6)
  1. HUMIRA [Suspect]
     Active Substance: ADALIMUMAB
     Indication: RHEUMATOID ARTHRITIS
     Dosage: 40 MG, ONCE DAILY
     Route: 058
     Dates: start: 20081010, end: 20180223
  2. VITAMIN D3 [Concomitant]
     Active Substance: CHOLECALCIFEROL
     Indication: RHEUMATOID ARTHRITIS
     Dosage: 3 TO 4 GTT PER DAY
     Route: 048
  3. METHOTREXATE. [Suspect]
     Active Substance: METHOTREXATE
     Indication: RHEUMATOID ARTHRITIS
     Dosage: 10 MG, ONCE DAILY
     Route: 048
  4. MEDROL [Suspect]
     Active Substance: METHYLPREDNISOLONE
     Indication: RHEUMATOID ARTHRITIS
     Dosage: 12 MG, ONCE DAILY
     Route: 048
  5. ZARACET [Concomitant]
     Indication: RHEUMATOID ARTHRITIS
     Dosage: 3 DOSE FORMS (DF), ONCE DAILY
     Route: 048
  6. FOLACIN /00024201/ [Concomitant]
     Active Substance: FOLIC ACID
     Indication: RHEUMATOID ARTHRITIS
     Dosage: 5 MG, ONCE DAILY
     Route: 048

REACTIONS (1)
  - Colorectal adenocarcinoma [Unknown]

NARRATIVE: CASE EVENT DATE: 20180312
